FAERS Safety Report 5618223-2 (Version None)
Quarter: 2008Q1

REPORT INFORMATION
  Report Type: 
  Country: None (occurrence: None)
  Receive Date: 20080207
  Receipt Date: 20080128
  Transmission Date: 20080703
  Serious: Yes (Hospitalization)
  Sender: FDA-Public Use
  Company Number: JP-JNJFOC-20071105170

PATIENT
  Sex: Male
  Weight: 42 kg

DRUGS (8)
  1. ITRIZOLE [Suspect]
     Indication: MUCOCUTANEOUS CANDIDIASIS
     Route: 048
  2. ITRIZOLE [Suspect]
     Route: 048
  3. ITRIZOLE [Suspect]
     Indication: DRUG USE FOR UNKNOWN INDICATION
     Route: 048
  4. THYRADIN S [Concomitant]
     Indication: HYPOTHYROIDISM
     Route: 048
  5. GASPORT-D [Concomitant]
     Indication: OESOPHAGEAL CANDIDIASIS
     Route: 048
  6. SELBEX [Concomitant]
     Indication: OESOPHAGEAL CANDIDIASIS
     Route: 048
  7. ALLOID G [Concomitant]
     Indication: OESOPHAGEAL CANDIDIASIS
     Route: 048
  8. ENTERONON-R [Concomitant]
     Indication: OESOPHAGEAL CANDIDIASIS
     Route: 048

REACTIONS (1)
  - CONVULSION [None]
